FAERS Safety Report 7310360-X (Version None)
Quarter: 2011Q1

REPORT INFORMATION
  Report Type: 
  Country: None (occurrence: None)
  Receive Date: 20110214
  Receipt Date: 20110131
  Transmission Date: 20110831
  Serious: Yes (Life-Threatening, Hospitalization)
  Sender: FDA-Public Use
  Company Number: 2011MA001015

PATIENT
  Age: 65 Year
  Sex: Female

DRUGS (12)
  1. PREV MEDS [Concomitant]
  2. MAGNYL [Concomitant]
  3. WARFARIN SODIUM [Concomitant]
  4. FURIX [Concomitant]
  5. DOLOL [Concomitant]
  6. ACETAMINOPHEN [Concomitant]
  7. IBUPROFEN [Suspect]
     Indication: PAIN
     Dosage: 600 MG, BID, PO
     Route: 048
     Dates: start: 20050101, end: 20110126
  8. KLORZOXAZON [Concomitant]
  9. SIFROL [Concomitant]
  10. SIMVASTATIN [Concomitant]
  11. LANSOPRAZOLE [Concomitant]
  12. KALEORID [Concomitant]

REACTIONS (2)
  - DEEP VEIN THROMBOSIS [None]
  - PULMONARY EMBOLISM [None]
